FAERS Safety Report 7249557-6 (Version None)
Quarter: 2011Q1

REPORT INFORMATION
  Report Type: 
  Country: None (occurrence: None)
  Receive Date: 20110128
  Receipt Date: 20101228
  Transmission Date: 20110831
  Serious: Yes (Hospitalization, Other)
  Sender: FDA-Public Use
  Company Number: FR-BAYER-201041815GPV

PATIENT
  Sex: Female

DRUGS (14)
  1. BACTRIM [Suspect]
     Dates: start: 20100731, end: 20100812
  2. TIENAM [Suspect]
     Route: 042
     Dates: start: 20100810, end: 20100813
  3. PROZAC [Concomitant]
  4. CANCIDAS [Suspect]
     Route: 042
     Dates: start: 20100724, end: 20100803
  5. NEXIUM [Concomitant]
  6. ZOVIRAX [Suspect]
     Dates: start: 20100719, end: 20100816
  7. CIFLOX [Suspect]
     Dates: start: 20100729, end: 20100808
  8. FLAGYL [Suspect]
     Dates: start: 20100719, end: 20100803
  9. KARDEGIC [Concomitant]
  10. VANCOMYCIN [Suspect]
     Route: 042
     Dates: start: 20100723, end: 20100808
  11. CLAFORAN [Suspect]
     Route: 042
     Dates: start: 20100723, end: 20100728
  12. XANAX [Concomitant]
  13. TAZOCILLINE [Suspect]
     Dates: start: 20100729, end: 20100807
  14. TAHOR [Concomitant]

REACTIONS (8)
  - LYMPHADENOPATHY [None]
  - DRUG RASH WITH EOSINOPHILIA AND SYSTEMIC SYMPTOMS [None]
  - RENAL FAILURE ACUTE [None]
  - TACHYCARDIA [None]
  - RASH [None]
  - PYREXIA [None]
  - EOSINOPHILIA [None]
  - LIP OEDEMA [None]
